FAERS Safety Report 5513938-9 (Version None)
Quarter: 2007Q4

REPORT INFORMATION
  Report Type: 
  Country: None (occurrence: None)
  Receive Date: 20071113
  Receipt Date: 20071031
  Transmission Date: 20080405
  Serious: Yes (Other)
  Sender: FDA-Public Use
  Company Number: FR-BRISTOL-MYERS SQUIBB COMPANY-13976725

PATIENT
  Age: 51 Year
  Sex: Female

DRUGS (3)
  1. ENDOXAN INJ [Suspect]
     Indication: BREAST CANCER
     Route: 042
     Dates: start: 20061114, end: 20070119
  2. FLUOROURACIL [Suspect]
     Indication: BREAST CANCER
     Route: 042
     Dates: start: 20061114, end: 20070119
  3. FARMORUBICIN [Suspect]
     Indication: BREAST CANCER
     Route: 042
     Dates: start: 20061114, end: 20070119

REACTIONS (4)
  - HYPERHIDROSIS [None]
  - LOSS OF CONSCIOUSNESS [None]
  - MALAISE [None]
  - TACHYCARDIA [None]
